FAERS Safety Report 23974630 (Version 2)
Quarter: 2024Q2

REPORT INFORMATION
  Report Type: Spontaneous
  Country: JP (occurrence: JP)
  Receive Date: 20240614
  Receipt Date: 20240624
  Transmission Date: 20240716
  Serious: Yes (Hospitalization, Other)
  Sender: FDA-Public Use
  Company Number: JP-002147023-NVSJ2024JP006970

PATIENT
  Age: 36 Year
  Sex: Female
  Weight: 42 kg

DRUGS (4)
  1. FINGOLIMOD [Suspect]
     Active Substance: FINGOLIMOD
     Indication: Multiple sclerosis
     Dosage: UNK
     Route: 065
  2. BROMAZEPAM [Concomitant]
     Active Substance: BROMAZEPAM
     Indication: Product used for unknown indication
     Dosage: 5 MG
     Route: 048
  3. BROTIZOLAM [Concomitant]
     Active Substance: BROTIZOLAM
     Indication: Product used for unknown indication
     Dosage: 0.25 MG
     Route: 048
  4. LANSOPRAZOLE [Concomitant]
     Active Substance: LANSOPRAZOLE
     Indication: Product used for unknown indication
     Dosage: 15 MG
     Route: 048

REACTIONS (6)
  - Tumefactive multiple sclerosis [Recovered/Resolved]
  - Muscular weakness [Recovered/Resolved]
  - Quadriplegia [Recovered/Resolved]
  - Dyslalia [Recovered/Resolved]
  - Rebound effect [Recovered/Resolved]
  - Drug-induced liver injury [Recovered/Resolved]
